FAERS Safety Report 7699855-7 (Version None)
Quarter: 2011Q3

REPORT INFORMATION
  Report Type: 
  Country: None (occurrence: None)
  Receive Date: 20110822
  Receipt Date: 20110816
  Transmission Date: 20111222
  Serious: Yes (Death, Hospitalization)
  Sender: FDA-Public Use
  Company Number: BR-SHIRE-SPV1-2008-02375

PATIENT
  Sex: Male
  Weight: 56 kg

DRUGS (1)
  1. IDURSULFASE [Suspect]
     Indication: MUCOPOLYSACCHARIDOSIS II
     Dosage: 0.5 MG/KG, 1X/WEEK
     Route: 041
     Dates: start: 20050216, end: 20081001

REACTIONS (2)
  - PNEUMONIA [None]
  - CARDIO-RESPIRATORY ARREST [None]
